FAERS Safety Report 16025537 (Version 2)
Quarter: 2019Q1

REPORT INFORMATION
  Report Type: Report from Study
  Country: None (occurrence: AR)
  Receive Date: 20190302
  Receipt Date: 20190329
  Transmission Date: 20190418
  Serious: Yes (Other)
  Sender: FDA-Public Use
  Company Number: AR-ABBVIE-19K-007-2682598-00

PATIENT
  Age: 74 Year
  Sex: Male

DRUGS (1)
  1. VENCLEXTA [Suspect]
     Active Substance: VENETOCLAX
     Indication: CHRONIC LYMPHOCYTIC LEUKAEMIA
     Route: 048
     Dates: start: 20170513

REACTIONS (4)
  - Eosinophil count increased [Unknown]
  - Tooth disorder [Unknown]
  - Blood bilirubin increased [Unknown]
  - Bruxism [Unknown]

NARRATIVE: CASE EVENT DATE: 201801
